FAERS Safety Report 18481851 (Version 3)
Quarter: 2021Q4

REPORT INFORMATION
  Report Type: Spontaneous
  Country: US (occurrence: US)
  Receive Date: 20201109
  Receipt Date: 20211210
  Transmission Date: 20220303
  Serious: No
  Sender: FDA-Public Use
  Company Number: US-PFIZER INC-2020437257

PATIENT
  Age: 67 Year
  Sex: Female
  Weight: 82.55 kg

DRUGS (1)
  1. XELJANZ XR [Suspect]
     Active Substance: TOFACITINIB CITRATE
     Indication: Rheumatoid arthritis
     Dosage: 11 MG, 1X/DAY

REACTIONS (3)
  - Intentional dose omission [Unknown]
  - Product prescribing error [Unknown]
  - Feeling abnormal [Unknown]
